FAERS Safety Report 20826056 (Version 1)
Quarter: 2022Q2

REPORT INFORMATION
  Report Type: Spontaneous
  Country: US (occurrence: US)
  Receive Date: 20220513
  Receipt Date: 20220513
  Transmission Date: 20220721
  Serious: No
  Sender: FDA-Public Use
  Company Number: US-MYLANLABS-2022M1034196

PATIENT
  Sex: Male

DRUGS (1)
  1. CYSTAGON [Suspect]
     Active Substance: CYSTEAMINE BITARTRATE
     Indication: Cystinosis
     Dosage: 300 MILLIGRAM (EVERY 6 MONTHS)
     Route: 048
     Dates: start: 2015

REACTIONS (1)
  - Malaise [Unknown]
